FAERS Safety Report 5482073-0 (Version None)
Quarter: 2007Q4

REPORT INFORMATION
  Report Type: 
  Country: None (occurrence: None)
  Receive Date: 20071005
  Receipt Date: 20071001
  Transmission Date: 20080405
  Serious: Yes (Other)
  Sender: FDA-Public Use
  Company Number: 2007327023

PATIENT
  Sex: Female

DRUGS (1)
  1. NICORETTE PATH (NICOTINE) [Suspect]
     Indication: SMOKING CESSATION THERAPY
     Dosage: TRANSDERMAL
     Route: 062

REACTIONS (1)
  - ECZEMA [None]
